FAERS Safety Report 6292059-4 (Version None)
Quarter: 2009Q3

REPORT INFORMATION
  Report Type: 
  Country: None (occurrence: None)
  Receive Date: 20090731
  Receipt Date: 20090727
  Transmission Date: 20100115
  Serious: Yes (Hospitalization)
  Sender: FDA-Public Use
  Company Number: US-BIOGENIDEC-2009BI023237

PATIENT
  Age: 40 Year
  Sex: Female

DRUGS (6)
  1. TYSABRI [Suspect]
     Indication: MULTIPLE SCLEROSIS
     Route: 042
     Dates: start: 20081114
  2. CYMBALTA [Concomitant]
     Dates: start: 20090220
  3. LUNESTA [Concomitant]
     Dates: start: 20090617
  4. MIDRIN [Concomitant]
     Dates: start: 20080901
  5. LOVENOX [Concomitant]
     Dates: start: 20090701
  6. PEPCID [Concomitant]
     Dates: start: 20090701

REACTIONS (1)
  - FACIAL PALSY [None]
